FAERS Safety Report 5470568-5 (Version None)
Quarter: 2007Q3

REPORT INFORMATION
  Report Type: 
  Country: None (occurrence: None)
  Receive Date: 20070928
  Receipt Date: 20070920
  Transmission Date: 20080115
  Serious: Yes (Hospitalization, Other)
  Sender: FDA-Public Use
  Company Number: PHHO2007BR15710

PATIENT
  Sex: Female

DRUGS (8)
  1. FORADIL [Suspect]
     Indication: ASTHMA
     Dosage: 12 MCG BID
  2. SINERGEN [Concomitant]
     Indication: HYPERTENSION
  3. NATRILIX - SLOW RELEASE [Concomitant]
     Indication: HYPERTENSION
  4. BETAHISTINE [Concomitant]
     Indication: LABYRINTHITIS
  5. EUTHYROX [Concomitant]
  6. LORAX [Concomitant]
  7. ALVESCO [Concomitant]
  8. CHONDROITIN W/GLUCOSAMINE [Concomitant]
     Indication: OSTEOARTHRITIS

REACTIONS (5)
  - CONFUSIONAL STATE [None]
  - COUGH [None]
  - GASTROOESOPHAGEAL REFLUX DISEASE [None]
  - LABYRINTHITIS [None]
  - THROAT IRRITATION [None]
